FAERS Safety Report 23683053 (Version 1)
Quarter: 2024Q1

REPORT INFORMATION
  Report Type: Spontaneous
  Country: US (occurrence: None)
  Receive Date: 20240327
  Receipt Date: 20240327
  Transmission Date: 20240410
  Serious: Yes (Other)
  Sender: FDA-Public Use
  Company Number: None

PATIENT
  Age: 10 Year
  Sex: Female

DRUGS (3)
  1. OMNICEF [Suspect]
     Active Substance: CEFDINIR
     Indication: Pharyngitis streptococcal
     Dosage: OTHER QUANTITY : 4.5 ML;?FREQUENCY : TWICE A DAY;?
     Route: 048
     Dates: start: 20240313, end: 20240321
  2. LACTAID [Concomitant]
  3. Multivitamin [Concomitant]

REACTIONS (2)
  - Abdominal pain [None]
  - Therapy cessation [None]

NARRATIVE: CASE EVENT DATE: 20240321
